FAERS Safety Report 9614524 (Version 4)
Quarter: 2013Q4

REPORT INFORMATION
  Report Type: Spontaneous
  Country: JP (occurrence: JP)
  Receive Date: 20131011
  Receipt Date: 20131211
  Transmission Date: 20140711
  Serious: Yes (Hospitalization)
  Sender: FDA-Public Use
  Company Number: PHHY2013JP114054

PATIENT
  Age: 82 Year
  Sex: Female
  Weight: 48 kg

DRUGS (7)
  1. RASILEZ [Suspect]
     Indication: HYPERTENSION
     Dosage: 150 MG, DAILY
     Route: 048
     Dates: end: 20130920
  2. RASILEZ [Suspect]
     Dosage: 150 MG, DAILY
     Route: 048
  3. OMEPRAZOLE [Concomitant]
     Indication: GASTRITIS
     Dosage: 10 MG, UNK
     Route: 048
  4. ATORVASTATIN [Concomitant]
     Indication: HYPERLIPIDAEMIA
     Dosage: 5 MG, UNK
     Route: 048
  5. HOCHUEKKITO [Concomitant]
     Indication: DECREASED APPETITE
     Dosage: 7.5 MG, UNK
     Route: 048
  6. PAXIL//PAROXETINE HYDROCHLORIDE [Concomitant]
     Indication: DEPRESSION
     Dosage: 10 MG, UNK
     Route: 048
  7. DESYREL [Concomitant]
     Indication: DEPRESSION
     Dosage: 25 MG, UNK
     Route: 048

REACTIONS (3)
  - Lung neoplasm malignant [Recovering/Resolving]
  - Decreased appetite [Unknown]
  - Weight decreased [Unknown]
